FAERS Safety Report 6246730-0 (Version None)
Quarter: 2009Q2

REPORT INFORMATION
  Report Type: 
  Country: None (occurrence: None)
  Receive Date: 20090626
  Receipt Date: 20090623
  Transmission Date: 20091009
  Serious: Yes (Hospitalization)
  Sender: FDA-Public Use
  Company Number: FR-WYE-G03905409

PATIENT
  Sex: Male
  Weight: 15.8 kg

DRUGS (2)
  1. ADVIL [Suspect]
     Indication: PYREXIA
     Route: 048
     Dates: start: 20090425, end: 20090426
  2. DOLIPRANE [Concomitant]
     Indication: PYREXIA
     Route: 048
     Dates: start: 20090426, end: 20090401

REACTIONS (6)
  - ACUTE SINUSITIS [None]
  - CONDITION AGGRAVATED [None]
  - EYE DISCHARGE [None]
  - EYELIDS PRURITUS [None]
  - LYMPHADENOPATHY [None]
  - RHINITIS [None]
